FAERS Safety Report 16767602 (Version 1)
Quarter: 2019Q4

REPORT INFORMATION
  Report Type: Spontaneous
  Country: US (occurrence: US)
  Receive Date: 20190903
  Receipt Date: 20190903
  Transmission Date: 20200122
  Serious: Yes (Disabling)
  Sender: FDA-Public Use
  Company Number: None

PATIENT
  Age: 50 Year
  Sex: Female

DRUGS (1)
  1. SAPHRIS [Suspect]
     Active Substance: ASENAPINE MALEATE
     Indication: INSOMNIA
     Dates: start: 20171015, end: 20171015

REACTIONS (4)
  - Impaired driving ability [None]
  - Narcolepsy [None]
  - Sleep attacks [None]
  - Sleep disorder [None]

NARRATIVE: CASE EVENT DATE: 20180725
